FAERS Safety Report 12922065 (Version 1)
Quarter: 2016Q4

REPORT INFORMATION
  Report Type: Report from Study
  Country: US (occurrence: US)
  Receive Date: 20161108
  Receipt Date: 20161108
  Transmission Date: 20170207
  Serious: Yes (Hospitalization)
  Sender: FDA-Public Use
  Company Number: US-VERTEX PHARMACEUTICALS-2015-004269

PATIENT
  Age: 21 Year
  Sex: Female

DRUGS (13)
  1. ORKAMBI [Suspect]
     Active Substance: IVACAFTOR\LUMACAFTOR
     Indication: CYSTIC FIBROSIS
     Dosage: 400MG/125MG, BID
     Route: 048
     Dates: start: 20150830, end: 20160204
  2. PULMOZYME [Concomitant]
     Active Substance: DORNASE ALFA
  3. COLISTIN [Concomitant]
     Active Substance: COLISTIN
  4. CAYSTON [Concomitant]
     Active Substance: AZTREONAM
  5. ZENPEP [Concomitant]
     Active Substance: PANCRELIPASE AMYLASE\PANCRELIPASE LIPASE\PANCRELIPASE PROTEASE
  6. AQUADEKS [Concomitant]
     Active Substance: MINERALS\VITAMINS
  7. BUDESONIDE. [Concomitant]
     Active Substance: BUDESONIDE
  8. AZITHROMYCIN ANHYDROUS. [Concomitant]
     Active Substance: AZITHROMYCIN ANHYDROUS
  9. TOBI [Concomitant]
     Active Substance: TOBRAMYCIN
  10. MINOCYCLINE [Concomitant]
     Active Substance: MINOCYCLINE\MINOCYCLINE HYDROCHLORIDE
  11. PROAIR HFA [Concomitant]
     Active Substance: ALBUTEROL SULFATE
  12. BACTRIM [Concomitant]
     Active Substance: SULFAMETHOXAZOLE\TRIMETHOPRIM
  13. ZOLOFT [Concomitant]
     Active Substance: SERTRALINE HYDROCHLORIDE

REACTIONS (6)
  - Dyspnoea [Recovering/Resolving]
  - Forced expiratory volume decreased [Recovered/Resolved]
  - Cough [Recovered/Resolved]
  - Feeling abnormal [Unknown]
  - Respiration abnormal [Unknown]
  - Drug ineffective [Unknown]

NARRATIVE: CASE EVENT DATE: 20150831
